FAERS Safety Report 5778369-5 (Version None)
Quarter: 2008Q2

REPORT INFORMATION
  Report Type: 
  Country: None (occurrence: None)
  Receive Date: 20080618
  Receipt Date: 20080618
  Transmission Date: 20081010
  Serious: Yes (Hospitalization)
  Sender: FDA-Public Use
  Company Number: None

PATIENT
  Age: 51 Year
  Sex: Male
  Weight: 93.44 kg

DRUGS (1)
  1. WARFARIN SODIUM [Suspect]
     Dosage: 8.5 MG EVERY DAY PO
     Route: 048
     Dates: start: 20070518

REACTIONS (4)
  - ABASIA [None]
  - ARTHRALGIA [None]
  - CHEST PAIN [None]
  - INTERNATIONAL NORMALISED RATIO INCREASED [None]
